FAERS Safety Report 5060044-6 (Version None)
Quarter: 2006Q3

REPORT INFORMATION
  Report Type: 
  Country: None (occurrence: None)
  Receive Date: 20060719
  Receipt Date: 20060712
  Transmission Date: 20061208
  Serious: Yes (Life-Threatening, Hospitalization)
  Sender: FDA-Public Use
  Company Number: 14400

PATIENT
  Age: 63 Year
  Sex: Female

DRUGS (10)
  1. FLUOROURACIL [Suspect]
     Indication: RECTAL CANCER
     Dosage: 960 MG/M2 PER CYCLE IV
     Route: 042
     Dates: start: 20051206
  2. LEUCOVORIN CALCIUM [Suspect]
     Indication: RECTAL CANCER
     Dosage: 400 MG/M2 PER CYCLE IV
     Route: 042
     Dates: start: 20051206
  3. OXALIPLATIN [Suspect]
     Indication: RECTAL CANCER
     Dosage: 65 MG/M2 PER CYCLE IV
     Route: 042
     Dates: start: 20051206
  4. AVASTIN [Suspect]
     Indication: RECTAL CANCER
     Dosage: 5 MG/KG PER CYCLE IV
     Route: 042
     Dates: start: 20051206
  5. TARCEVA [Suspect]
     Indication: RECTAL CANCER
     Dosage: 100 MG DAILY PO
     Route: 048
     Dates: start: 20051206, end: 20060315
  6. ONDANSETRON HCL [Concomitant]
  7. PROCHLORPERAZINE EDISYLATE [Concomitant]
  8. LORAZEPAM [Concomitant]
  9. CLINDAMYCIN [Concomitant]
  10. CEPHALEXIN MONOHYDRATE [Concomitant]

REACTIONS (4)
  - HAEMOGLOBIN DECREASED [None]
  - METASTATIC NEOPLASM [None]
  - NEUTROPENIA [None]
  - WHITE BLOOD CELL COUNT DECREASED [None]
